FAERS Safety Report 13516433 (Version 2)
Quarter: 2017Q2

REPORT INFORMATION
  Report Type: Spontaneous
  Country: AL (occurrence: AL)
  Receive Date: 20170505
  Receipt Date: 20170505
  Transmission Date: 20170830
  Serious: Yes (Other)
  Sender: FDA-Public Use
  Company Number: AL-ENDO PHARMACEUTICALS INC-2017-002697

PATIENT
  Age: 18 Year
  Sex: Male

DRUGS (1)
  1. ADRENALIN [Suspect]
     Active Substance: EPINEPHRINE
     Indication: DUODENAL ULCER HAEMORRHAGE
     Dosage: 10 ML OF 0.2%

REACTIONS (3)
  - Intestinal haematoma [Recovered/Resolved]
  - Off label use [Unknown]
  - Duodenal obstruction [Recovered/Resolved]
